FAERS Safety Report 7225016-1 (Version None)
Quarter: 2010Q4

REPORT INFORMATION
  Report Type: 
  Country: None (occurrence: None)
  Receive Date: 20101223
  Receipt Date: 20101213
  Transmission Date: 20110411
  Serious: Yes (Life-Threatening)
  Sender: FDA-Public Use
  Company Number: 2010022239

PATIENT
  Age: 56 Year
  Sex: Male

DRUGS (1)
  1. HAEMATE P (ANTIHEMOPHILIC FACTOR (HUMAN) VWF, DRIED, PASTEURIZED) [Suspect]
     Indication: VON WILLEBRAND'S DISEASE
     Dosage: INTRAVENOUS
     Route: 042
     Dates: start: 20010116

REACTIONS (2)
  - ACCIDENTAL OVERDOSE [None]
  - PULMONARY EMBOLISM [None]
